FAERS Safety Report 19033798 (Version 1)
Quarter: 2021Q1

REPORT INFORMATION
  Report Type: Spontaneous
  Country: CA (occurrence: CA)
  Receive Date: 20210320
  Receipt Date: 20210320
  Transmission Date: 20210420
  Serious: Yes (Other)
  Sender: FDA-Public Use
  Company Number: CA-LUPIN PHARMACEUTICALS INC.-2021-03462

PATIENT
  Age: 17 Year
  Sex: Female

DRUGS (2)
  1. ST. JOHN^S WORT [Interacting]
     Active Substance: ST. JOHN^S WORT
     Indication: PRODUCT USED FOR UNKNOWN INDICATION
     Dosage: UNK
     Route: 065
  2. METHYLPHENIDATE HYDROCHLORIDE. [Suspect]
     Active Substance: METHYLPHENIDATE HYDROCHLORIDE
     Indication: ATTENTION DEFICIT HYPERACTIVITY DISORDER
     Dosage: UNK (VIA OSMOTIC RELEASE ORAL DELIVERY SYSTEM)
     Route: 048

REACTIONS (3)
  - Psychotic disorder [Unknown]
  - Drug interaction [Unknown]
  - Schizophrenia [Unknown]
